FAERS Safety Report 14865113 (Version 1)
Quarter: 2018Q2

REPORT INFORMATION
  Report Type: Spontaneous
  Country: US (occurrence: US)
  Receive Date: 20180508
  Receipt Date: 20180508
  Transmission Date: 20180711
  Serious: Yes (Hospitalization)
  Sender: FDA-Public Use
  Company Number: US-ALKERMES INC.-ALK-2017-004635

PATIENT
  Age: 39 Year
  Sex: Male
  Weight: 86.17 kg

DRUGS (1)
  1. VIVITROL [Suspect]
     Active Substance: NALTREXONE
     Indication: DRUG DEPENDENCE
     Dosage: 380 MG, QMO
     Route: 030
     Dates: start: 20171013

REACTIONS (16)
  - Palpitations [Not Recovered/Not Resolved]
  - Hallucination, olfactory [Unknown]
  - Asthenia [Recovering/Resolving]
  - Dehydration [Unknown]
  - Chest pain [Unknown]
  - Feeling abnormal [Recovered/Resolved]
  - Hypophagia [Unknown]
  - Nausea [Unknown]
  - Insomnia [Not Recovered/Not Resolved]
  - Vomiting [Unknown]
  - Weight decreased [Not Recovered/Not Resolved]
  - Hypertension [Unknown]
  - Drug administration error [Unknown]
  - Angina pectoris [Unknown]
  - Withdrawal syndrome [Recovered/Resolved]
  - Influenza like illness [Recovered/Resolved]

NARRATIVE: CASE EVENT DATE: 201710
